FAERS Safety Report 4487595-7 (Version None)
Quarter: 2004Q4

REPORT INFORMATION
  Report Type: 
  Country: None (occurrence: None)
  Receive Date: 20041027
  Receipt Date: 20041027
  Transmission Date: 20050328
  Serious: Yes (Hospitalization)
  Sender: FDA-Public Use
  Company Number: None

PATIENT
  Age: 72 Year
  Sex: Male
  Weight: 95.3 kg

DRUGS (8)
  1. EZETIMIBE 5MG TAB [Suspect]
     Indication: BLOOD CHOLESTEROL INCREASED
     Dosage: 5 MG, DAILY, ORAL
     Route: 048
  2. PRAVASTATIN [Concomitant]
  3. LISINOPRIL [Concomitant]
  4. ALBUTEROL/IPRATROPIUM INHALER [Concomitant]
  5. GLYBURIDE [Concomitant]
  6. MELOXICAM [Concomitant]
  7. METOPROLOL SUCCINATE [Concomitant]
  8. NITROGLYCERIN SR [Concomitant]

REACTIONS (3)
  - CHEST PAIN [None]
  - DYSPNOEA [None]
  - STOMACH DISCOMFORT [None]
